FAERS Safety Report 11089676 (Version 2)
Quarter: 2015Q2

REPORT INFORMATION
  Report Type: Spontaneous
  Country: US (occurrence: US)
  Receive Date: 20150505
  Receipt Date: 20150519
  Transmission Date: 20150821
  Serious: Yes (Hospitalization)
  Sender: FDA-Public Use
  Company Number: US-SUN PHARMACEUTICAL INDUSTRIES LTD-2015US-96532

PATIENT
  Age: 42 Year
  Sex: Female

DRUGS (2)
  1. SUMATRIPTAN. [Suspect]
     Active Substance: SUMATRIPTAN
     Indication: MIGRAINE
     Dosage: UNK
     Route: 058
  2. MORPHINE [Suspect]
     Active Substance: MORPHINE
     Indication: PRODUCT USED FOR UNKNOWN INDICATION
     Dosage: UNK
     Route: 065

REACTIONS (7)
  - Cerebrovascular accident [Recovering/Resolving]
  - Supraventricular tachycardia [Recovering/Resolving]
  - Heart rate increased [Recovering/Resolving]
  - Torsade de pointes [Recovering/Resolving]
  - Blood pressure increased [Recovering/Resolving]
  - Ventricular fibrillation [Recovering/Resolving]
  - Atrial fibrillation [Recovering/Resolving]
